FAERS Safety Report 12400326 (Version 1)
Quarter: 2016Q2

REPORT INFORMATION
  Report Type: Report from Study
  Country: FR (occurrence: FR)
  Receive Date: 20160525
  Receipt Date: 20160525
  Transmission Date: 20160815
  Serious: Yes (Hospitalization)
  Sender: FDA-Public Use
  Company Number: FR-ROCHE-1761659

PATIENT
  Sex: Female

DRUGS (12)
  1. RITUXIMAB [Suspect]
     Active Substance: RITUXIMAB
     Dosage: DAY 15.
     Route: 042
     Dates: start: 20080218
  2. ZOCOR [Concomitant]
     Active Substance: SIMVASTATIN
     Dosage: 10 MG 0.5 TAB/DAY.
     Route: 065
  3. RITUXIMAB [Suspect]
     Active Substance: RITUXIMAB
     Dosage: DAY 1.
     Route: 042
     Dates: start: 20080204
  4. SPECIAFOLDINE [Concomitant]
     Active Substance: FOLIC ACID
     Route: 065
  5. SIMVASTATINE [Concomitant]
     Active Substance: SIMVASTATIN
     Route: 065
  6. RITUXIMAB [Suspect]
     Active Substance: RITUXIMAB
     Dosage: DAY 1.
     Route: 042
     Dates: start: 200804
  7. RITUXIMAB [Suspect]
     Active Substance: RITUXIMAB
     Route: 042
     Dates: end: 20130710
  8. METHOTREXATE [Concomitant]
     Active Substance: METHOTREXATE
     Dosage: PER WEEK.
     Route: 065
  9. LANSOPRAZOLE. [Concomitant]
     Active Substance: LANSOPRAZOLE
     Route: 065
  10. RITUXIMAB [Suspect]
     Active Substance: RITUXIMAB
     Indication: RHEUMATOID ARTHRITIS
     Dosage: DAY 1.
     Route: 042
     Dates: start: 20080107
  11. RITUXIMAB [Suspect]
     Active Substance: RITUXIMAB
     Dosage: DAY 15.
     Route: 042
     Dates: start: 20080121
  12. RITUXIMAB [Suspect]
     Active Substance: RITUXIMAB
     Dosage: DAY 15.
     Route: 042
     Dates: start: 20080424

REACTIONS (6)
  - Hypothyroidism [Not Recovered/Not Resolved]
  - Respiratory disorder [Not Recovered/Not Resolved]
  - Depression [Recovered/Resolved]
  - General physical health deterioration [Not Recovered/Not Resolved]
  - Pneumonia [Recovering/Resolving]
  - Amnesia [Not Recovered/Not Resolved]

NARRATIVE: CASE EVENT DATE: 20110322
